FAERS Safety Report 9529393 (Version 1)
Quarter: 2013Q1

REPORT INFORMATION
  Report Type: Spontaneous
  Country: US (occurrence: None)
  Receive Date: 20130318
  Receipt Date: 20130318
  Transmission Date: 20140127
  Serious: Yes (Other)
  Sender: FDA-Public Use
  Company Number: 1301USA001840

PATIENT
  Sex: Male

DRUGS (1)
  1. SYLATRON [Suspect]
     Dates: start: 201210

REACTIONS (1)
  - Convulsion [None]
